FAERS Safety Report 6995919-1 (Version None)
Quarter: 2010Q3

REPORT INFORMATION
  Report Type: 
  Country: None (occurrence: None)
  Receive Date: 20100918
  Receipt Date: 20081120
  Transmission Date: 20110219
  Serious: Yes (Other)
  Sender: FDA-Public Use
  Company Number: US-WYE-H06932808

PATIENT
  Age: 51 Year
  Sex: Female

DRUGS (3)
  1. EFFEXOR XR [Suspect]
     Indication: DEPRESSION
     Dosage: INCREASED TO 375 MG, FREQUENCY UNKNOWN
     Route: 048
     Dates: start: 20081113
  2. EFFEXOR XR [Suspect]
     Indication: ANXIETY
     Dosage: 300 MG, FREQUENCY UNKNOWN
     Route: 048
     Dates: end: 20081112
  3. COZAAR [Concomitant]
     Indication: HYPERTENSION

REACTIONS (2)
  - DRUG EFFECT DECREASED [None]
  - SUICIDAL IDEATION [None]
